FAERS Safety Report 4849855-7 (Version None)
Quarter: 2005Q4

REPORT INFORMATION
  Report Type: 
  Country: None (occurrence: None)
  Receive Date: 20051115
  Receipt Date: 20050804
  Transmission Date: 20060501
  Serious: Yes (Other)
  Sender: FDA-Public Use
  Company Number: 410320

PATIENT
  Age: 55 Year
  Sex: Female
  Weight: 58.1 kg

DRUGS (5)
  1. PEGASYS [Suspect]
     Indication: HEPATITIS C VIRUS
     Dosage: 180 MCG 1 PER WEEK SUBCUTANEOUS
     Route: 058
     Dates: start: 20050619, end: 20051002
  2. COPEGUS [Suspect]
     Indication: HEPATITIS C VIRUS
     Dosage: ORAL
     Route: 048
     Dates: start: 20050619
  3. ACTONEL [Concomitant]
  4. FLUOXETINE [Concomitant]
  5. CITRACAL + D (CALCIUM CITRATE/ERGOCALCIFEROL) [Concomitant]

REACTIONS (7)
  - ANXIETY [None]
  - EPISTAXIS [None]
  - MYALGIA [None]
  - NAIL BED BLEEDING [None]
  - PLATELET COUNT DECREASED [None]
  - PYREXIA [None]
  - WHITE BLOOD CELL COUNT DECREASED [None]
